FAERS Safety Report 17875675 (Version 1)
Quarter: 2020Q2

REPORT INFORMATION
  Report Type: Spontaneous
  Country: BR (occurrence: BR)
  Receive Date: 20200609
  Receipt Date: 20200609
  Transmission Date: 20200714
  Serious: Yes (Other)
  Sender: FDA-Public Use
  Company Number: BR-JNJFOC-20200607092

PATIENT
  Sex: Male
  Weight: 57 kg

DRUGS (3)
  1. IMOSEC [Suspect]
     Active Substance: LOPERAMIDE
     Indication: DIARRHOEA
     Dosage: 4 TO 5 PER DAY
     Route: 048
     Dates: start: 2001
  2. CREON [Concomitant]
     Active Substance: PANCRELIPASE AMYLASE\PANCRELIPASE LIPASE\PANCRELIPASE PROTEASE
  3. TOSTRAN [Concomitant]
     Active Substance: TESTOSTERONE

REACTIONS (4)
  - Gastrointestinal neoplasm [Unknown]
  - Off label use [Unknown]
  - Neoplasm [Unknown]
  - Incorrect dose administered [Unknown]

NARRATIVE: CASE EVENT DATE: 2001
